FAERS Safety Report 7586419-9 (Version None)
Quarter: 2011Q3

REPORT INFORMATION
  Report Type: 
  Country: None (occurrence: None)
  Receive Date: 20110701
  Receipt Date: 20110623
  Transmission Date: 20111222
  Serious: Yes (Other)
  Sender: FDA-Public Use
  Company Number: B0710155A

PATIENT
  Sex: Male
  Weight: 27.6 kg

DRUGS (18)
  1. LORAZEPAM [Concomitant]
     Route: 048
     Dates: start: 20080117, end: 20080410
  2. POTASSIUM CHLORIDE [Concomitant]
     Route: 042
     Dates: start: 20080117, end: 20080127
  3. BIOFERMIN R [Concomitant]
     Route: 048
     Dates: start: 20080117, end: 20080131
  4. ALIMEZINE [Concomitant]
     Route: 048
     Dates: start: 20080117, end: 20080209
  5. NEO-MINOPHAGEN-C [Concomitant]
     Route: 042
     Dates: start: 20080117, end: 20080128
  6. FUROSEMIDE [Concomitant]
     Route: 042
     Dates: start: 20080124, end: 20080127
  7. FUNGUARD [Concomitant]
     Route: 042
     Dates: start: 20080125, end: 20080203
  8. THIOTEPA [Suspect]
     Indication: STEM CELL TRANSPLANT
     Dosage: 200MGM2 PER DAY
     Dates: start: 20080117, end: 20080118
  9. THIOTEPA [Suspect]
     Dosage: 200MGM2 PER DAY
     Dates: start: 20080124, end: 20080125
  10. POSTERISAN [Concomitant]
     Route: 061
     Dates: start: 20080124, end: 20080212
  11. HEPARIN [Concomitant]
     Route: 058
     Dates: start: 20080118, end: 20080421
  12. FLUMARIN [Concomitant]
     Route: 042
     Dates: start: 20080125, end: 20080129
  13. MUCOSOLVAN [Concomitant]
     Route: 048
     Dates: start: 20080117, end: 20080313
  14. SODIUM CHLORIDE [Concomitant]
     Dates: start: 20080117, end: 20080214
  15. ALKERAN [Suspect]
     Indication: STEM CELL TRANSPLANT
     Dosage: 50MGM2 PER DAY
     Route: 042
     Dates: start: 20080124, end: 20080125
  16. CANDESARTAN CILEXETIL [Concomitant]
     Route: 048
     Dates: start: 20080117, end: 20080205
  17. URSO 250 [Concomitant]
     Route: 048
     Dates: start: 20080117, end: 20080201
  18. KYTRIL [Concomitant]
     Route: 042
     Dates: start: 20080124, end: 20080127

REACTIONS (1)
  - SEPTIC SHOCK [None]
